FAERS Safety Report 12386912 (Version 1)
Quarter: 2016Q2

REPORT INFORMATION
  Report Type: Spontaneous
  Country: CA (occurrence: CA)
  Receive Date: 20160519
  Receipt Date: 20160519
  Transmission Date: 20160815
  Serious: Yes (Other)
  Sender: FDA-Public Use
  Company Number: CA-FRESENIUS KABI-FK201602759

PATIENT
  Age: 30 Year
  Sex: Female

DRUGS (2)
  1. ELOXATIN [Suspect]
     Active Substance: OXALIPLATIN
     Indication: PANCREATIC CARCINOMA
     Route: 042
  2. IRINOTECAN (MANUFACTURER UNKNOWN) [Suspect]
     Active Substance: IRINOTECAN
     Indication: PANCREATIC CARCINOMA
     Route: 042

REACTIONS (4)
  - Infusion related reaction [Recovered/Resolved]
  - Swollen tongue [Recovered/Resolved]
  - Dysarthria [Recovered/Resolved]
  - Urticaria [Recovered/Resolved]
